FAERS Safety Report 7804854-8 (Version None)
Quarter: 2011Q4

REPORT INFORMATION
  Report Type: 
  Country: None (occurrence: None)
  Receive Date: 20111010
  Receipt Date: 20111004
  Transmission Date: 20120403
  Serious: Yes (Life-Threatening, Hospitalization)
  Sender: FDA-Public Use
  Company Number: BR-ROCHE-674988

PATIENT
  Sex: Female
  Weight: 68 kg

DRUGS (11)
  1. ACTEMRA [Suspect]
     Dosage: PERMANENTLY DISCONTINUED.
     Route: 042
  2. ACTEMRA [Suspect]
     Indication: RHEUMATOID ARTHRITIS
     Dosage: FORM: INFUSION
     Route: 042
     Dates: start: 20080206, end: 20091110
  3. MELOXICAM [Concomitant]
     Dates: start: 20040101, end: 20091101
  4. OMEPRAZOLE [Concomitant]
  5. METHOTREXATE [Concomitant]
     Dosage: FREQUENCY: QS
     Route: 048
     Dates: start: 20040101, end: 20100120
  6. CORTICOSTEROID NOS [Concomitant]
     Route: 048
  7. PREDNISONE [Concomitant]
  8. FOLIC ACID [Concomitant]
     Dates: start: 20040101, end: 20100120
  9. CHLOROQUINE [Concomitant]
     Dosage: DRUG: CHLOROQUINE DIPHOSPHATE
     Dates: start: 20070809, end: 20100120
  10. ACTEMRA [Suspect]
     Dosage: PATIENT WAS PREVIOUSLY ENROLLED IN WA18063.
     Route: 042
  11. FLUOXETINE [Concomitant]

REACTIONS (1)
  - LUNG ADENOCARCINOMA STAGE II [None]
